FAERS Safety Report 25123956 (Version 2)
Quarter: 2025Q2

REPORT INFORMATION
  Report Type: Spontaneous
  Country: CH (occurrence: CH)
  Receive Date: 20250326
  Receipt Date: 20250408
  Transmission Date: 20250716
  Serious: Yes (Other)
  Sender: BAYER
  Company Number: CH-BAYER-2025A040718

PATIENT
  Age: 51 Year
  Weight: 118 kg

DRUGS (2)
  1. ULTRAVIST [Suspect]
     Active Substance: IOPROMIDE
     Indication: Computerised tomogram heart
     Route: 042
     Dates: start: 20250305, end: 20250305
  2. ULTRAVIST [Suspect]
     Active Substance: IOPROMIDE
     Indication: Computerised tomogram heart
     Route: 042
     Dates: start: 20250305, end: 20250305

REACTIONS (3)
  - Circulatory collapse [Recovered/Resolved]
  - Nausea [Recovered/Resolved]
  - Dizziness [Recovered/Resolved]

NARRATIVE: CASE EVENT DATE: 20250305
